FAERS Safety Report 19193317 (Version 1)
Quarter: 2021Q2

REPORT INFORMATION
  Report Type: Spontaneous
  Country: IN (occurrence: IN)
  Receive Date: 20210428
  Receipt Date: 20210428
  Transmission Date: 20210717
  Serious: Yes (Hospitalization, Other)
  Sender: FDA-Public Use
  Company Number: IN-ANIPHARMA-2021-IN-000064

PATIENT
  Age: 40 Year
  Sex: Male

DRUGS (2)
  1. TRIHEXYPHENIDYL [Concomitant]
     Active Substance: TRIHEXYPHENIDYL
     Dosage: 2 MG DAILY
  2. RISPERIDONE (NON?SPECIFIC) [Suspect]
     Active Substance: RISPERIDONE
     Indication: SCHIZOPHRENIA
     Dosage: 2 MG DAILY

REACTIONS (1)
  - Deep vein thrombosis [Recovered/Resolved]
